FAERS Safety Report 4834180-0 (Version None)
Quarter: 2005Q4

REPORT INFORMATION
  Report Type: 
  Country: None (occurrence: None)
  Receive Date: 20051122
  Receipt Date: 20051114
  Transmission Date: 20060501
  Serious: Yes (Hospitalization)
  Sender: FDA-Public Use
  Company Number: AU-NOVOPROD-248574

PATIENT
  Sex: Female

DRUGS (2)
  1. NOVORAPID FLEXPEN [Suspect]
     Indication: ILL-DEFINED DISORDER
  2. PROTAPHANE [Suspect]
     Indication: ILL-DEFINED DISORDER

REACTIONS (2)
  - NAUSEA [None]
  - VOMITING [None]
